FAERS Safety Report 25550736 (Version 2)
Quarter: 2025Q3

REPORT INFORMATION
  Report Type: Report from Study
  Country: CA (occurrence: CA)
  Receive Date: 20250714
  Receipt Date: 20250718
  Transmission Date: 20251021
  Serious: Yes (Hospitalization, Other)
  Sender: HLS THERAPEUTICS
  Company Number: CA-HLS-202501814

PATIENT
  Age: 26 Year
  Sex: Female
  Weight: 125 kg

DRUGS (2)
  1. CLOZARIL [Suspect]
     Active Substance: CLOZAPINE
     Indication: Product used for unknown indication
     Route: 048
     Dates: start: 20240808
  2. NICOTINE [Suspect]
     Active Substance: NICOTINE
     Indication: Product used for unknown indication
     Route: 065
     Dates: start: 20250707

REACTIONS (8)
  - Hypertension [Unknown]
  - Feeling guilty [Unknown]
  - Hallucination, auditory [Unknown]
  - Tremor [Unknown]
  - Labelled drug-drug interaction issue [Unknown]
  - Tobacco poisoning [Unknown]
  - Suicidal ideation [Unknown]
  - Tachycardia [Recovered/Resolved]

NARRATIVE: CASE EVENT DATE: 20250707
